FAERS Safety Report 7859213-9 (Version None)
Quarter: 2011Q4

REPORT INFORMATION
  Report Type: 
  Country: None (occurrence: None)
  Receive Date: 20111027
  Receipt Date: 20111027
  Transmission Date: 20120403
  Serious: No
  Sender: FDA-Public Use
  Company Number: None

PATIENT
  Age: 47 Year
  Sex: Female
  Weight: 120.65 kg

DRUGS (1)
  1. CYMBALTA [Suspect]
     Dosage: 20MG
     Route: 048
     Dates: start: 20110601, end: 20111026

REACTIONS (11)
  - PALPITATIONS [None]
  - HEAD DISCOMFORT [None]
  - ERYTHEMA NODOSUM [None]
  - PAIN IN EXTREMITY [None]
  - IRRITABILITY [None]
  - MOOD SWINGS [None]
  - FEELING ABNORMAL [None]
  - SWELLING [None]
  - DISTURBANCE IN ATTENTION [None]
  - DYSPNOEA [None]
  - DIZZINESS [None]
